FAERS Safety Report 16814313 (Version 1)
Quarter: 2019Q3

REPORT INFORMATION
  Report Type: Spontaneous
  Country: KR (occurrence: KR)
  Receive Date: 20190917
  Receipt Date: 20190917
  Transmission Date: 20191005
  Serious: Yes (Hospitalization, Other)
  Sender: FDA-Public Use
  Company Number: KR-LUPIN PHARMACEUTICALS INC.-2019-05965

PATIENT
  Age: 82 Year
  Sex: Male

DRUGS (2)
  1. MOXIFLOXACIN HCL [Suspect]
     Active Substance: MOXIFLOXACIN
     Indication: INFECTIVE SPONDYLITIS
     Dosage: UNK
     Route: 042
  2. CEFIXIME. [Suspect]
     Active Substance: CEFIXIME
     Indication: INFECTIVE SPONDYLITIS
     Dosage: UNK
     Route: 042

REACTIONS (5)
  - C-reactive protein increased [Recovered/Resolved]
  - Abdominal pain [Recovered/Resolved]
  - Paradoxical drug reaction [Recovered/Resolved]
  - Diarrhoea [Recovered/Resolved]
  - Red blood cell sedimentation rate increased [Recovered/Resolved]
